FAERS Safety Report 24809813 (Version 1)
Quarter: 2025Q1

REPORT INFORMATION
  Report Type: Spontaneous
  Country: ES (occurrence: ES)
  Receive Date: 20250106
  Receipt Date: 20250106
  Transmission Date: 20250408
  Serious: Yes (Other)
  Sender: ACCORD
  Company Number: None

PATIENT
  Age: 62 Year
  Sex: Male

DRUGS (3)
  1. FLUOROURACIL [Interacting]
     Active Substance: FLUOROURACIL
     Indication: Colon cancer metastatic
     Dates: start: 20240214
  2. IRINOTECAN [Interacting]
     Active Substance: IRINOTECAN
     Indication: Colon cancer metastatic
     Dates: start: 20240214
  3. AFLIBERCEPT [Interacting]
     Active Substance: AFLIBERCEPT
     Indication: Colon cancer metastatic
     Dates: start: 20240214

REACTIONS (1)
  - Pulmonary embolism [Unknown]

NARRATIVE: CASE EVENT DATE: 20240711
